FAERS Safety Report 4582689-X (Version None)
Quarter: 2005Q1

REPORT INFORMATION
  Report Type: 
  Country: None (occurrence: None)
  Receive Date: 20050215
  Receipt Date: 20050202
  Transmission Date: 20050727
  Serious: Yes (Hospitalization)
  Sender: FDA-Public Use
  Company Number: US-GLAXOSMITHKLINE-A0543436A

PATIENT
  Age: 74 Year
  Sex: Female

DRUGS (7)
  1. CITRUCEL CLEAR MIX [Suspect]
     Indication: CONSTIPATION
     Route: 048
     Dates: start: 20020701
  2. CITRUCEL SUGAR-FREE SUSPENSION ORANGE [Suspect]
     Indication: CONSTIPATION
     Route: 048
     Dates: start: 20020101
  3. FOSAMAX [Concomitant]
  4. ESTROGEN PATCH [Concomitant]
  5. LEVOTHYROXINE [Concomitant]
  6. METOPROLOL [Concomitant]
  7. LORAZEPAM [Concomitant]
     Indication: ANXIETY

REACTIONS (4)
  - CONSTIPATION [None]
  - DIFFICULTY IN WALKING [None]
  - OEDEMA PERIPHERAL [None]
  - VENOUS INSUFFICIENCY [None]
